FAERS Safety Report 9738393 (Version 3)
Quarter: 2013Q4

REPORT INFORMATION
  Report Type: Report from Study
  Country: DE (occurrence: DE)
  Receive Date: 20131208
  Receipt Date: 20131216
  Transmission Date: 20140711
  Serious: Yes (Hospitalization)
  Sender: FDA-Public Use
  Company Number: DE-ROCHE-1313885

PATIENT
  Age: 72 Year
  Sex: Female
  Weight: 57 kg

DRUGS (5)
  1. RHUPH20/TRASTUZUMAB [Suspect]
     Indication: BREAST CANCER
     Dosage: LAST DOSE PRIOR TO SAE: 23/OCT/2013
     Route: 058
     Dates: start: 20121024
  2. DIGITOXIN [Concomitant]
     Route: 065
     Dates: start: 2003
  3. VIANI [Concomitant]
     Dosage: 50/250 MCG
     Route: 065
     Dates: start: 1972
  4. PREDNISOLON [Concomitant]
     Route: 065
     Dates: start: 20130902, end: 20130924
  5. PREDNISOLON [Concomitant]
     Route: 065
     Dates: start: 20131121, end: 20131130

REACTIONS (1)
  - Asthma [Recovered/Resolved]
